FAERS Safety Report 10066501 (Version 2)
Quarter: 2014Q2

REPORT INFORMATION
  Report Type: Report from Study
  Country: AR (occurrence: AR)
  Receive Date: 20140408
  Receipt Date: 20140409
  Transmission Date: 20141212
  Serious: Yes (Other)
  Sender: FDA-Public Use
  Company Number: PHHY2014AR041865

PATIENT
  Age: 37 Year
  Sex: Male

DRUGS (1)
  1. LEPONEX / CLOZARIL [Suspect]
     Indication: SCHIZOPHRENIA
     Dosage: UNK UKN, UNK
     Route: 048

REACTIONS (5)
  - Respiratory distress [Recovered/Resolved]
  - Cough [Recovered/Resolved]
  - Suffocation feeling [Recovered/Resolved]
  - Respiratory disorder [Unknown]
  - Salivary hypersecretion [Recovered/Resolved]
